FAERS Safety Report 13228458 (Version 3)
Quarter: 2018Q3

REPORT INFORMATION
  Report Type: Spontaneous
  Country: US (occurrence: US)
  Receive Date: 20170213
  Receipt Date: 20180828
  Transmission Date: 20181010
  Serious: No
  Sender: FDA-Public Use
  Company Number: US-ROCHE-1855904

PATIENT
  Age: 76 Year
  Sex: Male
  Weight: 68.1 kg

DRUGS (18)
  1. KEPPRA [Concomitant]
     Active Substance: LEVETIRACETAM
     Route: 048
  2. TYLENOL [Concomitant]
     Active Substance: ACETAMINOPHEN
  3. ROXICODONE [Concomitant]
     Active Substance: OXYCODONE HYDROCHLORIDE
  4. COLACE [Concomitant]
     Active Substance: DOCUSATE SODIUM
     Route: 048
  5. REMERON [Concomitant]
     Active Substance: MIRTAZAPINE
  6. COENZYME Q10 [Concomitant]
     Active Substance: UBIDECARENONE
     Route: 048
  7. DEXAMETHASONE. [Concomitant]
     Active Substance: DEXAMETHASONE
     Route: 048
     Dates: start: 20160921, end: 20170517
  8. TRIAMCINOLONE [Concomitant]
     Active Substance: TRIAMCINOLONE
     Route: 061
     Dates: start: 20171013
  9. DECADRON [Concomitant]
     Active Substance: DEXAMETHASONE
     Route: 048
  10. ZOCOR [Concomitant]
     Active Substance: SIMVASTATIN
  11. ALECENSA [Suspect]
     Active Substance: ALECTINIB HYDROCHLORIDE
     Indication: LUNG CANCER METASTATIC
     Dosage: TAKE 4 CAPSULES TWICE DAILY
     Route: 048
     Dates: start: 20160113
  12. COUMADIN [Concomitant]
     Active Substance: WARFARIN SODIUM
     Route: 048
  13. SENOKOT [Concomitant]
     Active Substance: SENNOSIDES
  14. VITAMIN C [Concomitant]
     Active Substance: ASCORBIC ACID
  15. RITALIN [Concomitant]
     Active Substance: METHYLPHENIDATE HYDROCHLORIDE
     Route: 048
  16. TEMAZEPAM. [Concomitant]
     Active Substance: TEMAZEPAM
     Route: 048
     Dates: start: 20180410
  17. PEPCID (UNITED STATES) [Concomitant]
  18. FLUVIRIN (UNITED STATES) [Concomitant]
     Route: 030
     Dates: start: 20171213

REACTIONS (4)
  - Anxiety [Not Recovered/Not Resolved]
  - Rash [Recovered/Resolved]
  - Fatigue [Not Recovered/Not Resolved]
  - Rash [Unknown]

NARRATIVE: CASE EVENT DATE: 20160114
